FAERS Safety Report 10143305 (Version 1)
Quarter: 2014Q2

REPORT INFORMATION
  Report Type: Spontaneous
  Country: GB (occurrence: GB)
  Receive Date: 20140430
  Receipt Date: 20140430
  Transmission Date: 20141212
  Serious: Yes (Hospitalization)
  Sender: FDA-Public Use
  Company Number: GB-ASTRAZENECA-2014SE27698

PATIENT
  Age: 84 Year
  Sex: Female

DRUGS (11)
  1. LISINOPRIL [Suspect]
     Indication: HYPERTENSION
     Route: 048
  2. BUMETANIDE [Suspect]
     Route: 048
  3. LIRAGLUTIDE [Suspect]
     Route: 048
  4. SPIRONOLACTONE [Suspect]
     Route: 048
  5. TOLBUTAMIDE [Suspect]
     Route: 048
  6. WARFARIN [Suspect]
     Indication: ATRIAL FIBRILLATION
     Route: 048
  7. ACARBOSE [Concomitant]
  8. ATORVASTATIN [Concomitant]
  9. BISOPROLOL [Concomitant]
  10. OMEPRAZOLE [Concomitant]
  11. PARACETAMOL [Concomitant]

REACTIONS (4)
  - Epistaxis [Unknown]
  - International normalised ratio increased [Unknown]
  - Renal failure acute [Unknown]
  - Hypoglycaemia [Unknown]
